FAERS Safety Report 23462122 (Version 5)
Quarter: 2024Q2

REPORT INFORMATION
  Report Type: Spontaneous
  Country: US (occurrence: US)
  Receive Date: 20240131
  Receipt Date: 20240510
  Transmission Date: 20240716
  Serious: Yes (Other)
  Sender: FDA-Public Use
  Company Number: US-Blueprint Medicines Corporation-2112

PATIENT
  Sex: Female

DRUGS (14)
  1. AYVAKIT [Suspect]
     Active Substance: AVAPRITINIB
     Indication: Indolent systemic mastocytosis
     Route: 065
  2. AYVAKIT [Suspect]
     Active Substance: AVAPRITINIB
     Indication: Systemic mastocytosis
     Route: 048
     Dates: start: 20240125
  3. AYVAKIT [Suspect]
     Active Substance: AVAPRITINIB
     Route: 065
     Dates: end: 2023
  4. MONTELUKAST [Suspect]
     Active Substance: MONTELUKAST SODIUM
     Indication: Product used for unknown indication
     Route: 065
  5. NEURONTIN [Suspect]
     Active Substance: GABAPENTIN
     Indication: Tremor
     Route: 065
  6. NEURONTIN [Suspect]
     Active Substance: GABAPENTIN
     Indication: Neurogenic cough
  7. AMOXICILLIN [Concomitant]
     Active Substance: AMOXICILLIN
     Indication: Product used for unknown indication
     Route: 065
  8. TYLENOL [Concomitant]
     Active Substance: ACETAMINOPHEN
     Indication: Headache
     Route: 065
  9. SYMBICORT [Concomitant]
     Active Substance: BUDESONIDE\FORMOTEROL FUMARATE DIHYDRATE
     Indication: Product used for unknown indication
     Dosage: 2 PUFFS
     Route: 065
  10. FOSAMAX [Concomitant]
     Active Substance: ALENDRONATE SODIUM
     Indication: Product used for unknown indication
     Route: 065
  11. ASTELIN [Concomitant]
     Active Substance: AZELASTINE HYDROCHLORIDE
     Indication: Product used for unknown indication
     Route: 065
  12. Xopenex MDI [Concomitant]
     Indication: Product used for unknown indication
     Route: 065
  13. CROMOLYN [Concomitant]
     Active Substance: CROMOLYN
     Indication: Product used for unknown indication
     Route: 065
  14. BISOPROLOL [Concomitant]
     Active Substance: BISOPROLOL\BISOPROLOL FUMARATE
     Indication: Postural orthostatic tachycardia syndrome
     Route: 065

REACTIONS (18)
  - Knee arthroplasty [Not Recovered/Not Resolved]
  - Tremor [Unknown]
  - Swelling face [Unknown]
  - Headache [Unknown]
  - Fatigue [Not Recovered/Not Resolved]
  - Nausea [Not Recovered/Not Resolved]
  - Periorbital oedema [Not Recovered/Not Resolved]
  - Dizziness [Not Recovered/Not Resolved]
  - Periorbital swelling [Unknown]
  - Alopecia [Unknown]
  - Asthenia [Unknown]
  - Tryptase increased [Not Recovered/Not Resolved]
  - Pain [Not Recovered/Not Resolved]
  - Tendon disorder [Not Recovered/Not Resolved]
  - Muscle strain [Not Recovered/Not Resolved]
  - Somnolence [Recovered/Resolved]
  - Migraine [Recovering/Resolving]
  - Food intolerance [Unknown]
